FAERS Safety Report 16300449 (Version 3)
Quarter: 2019Q2

REPORT INFORMATION
  Report Type: Spontaneous
  Country: CA (occurrence: CA)
  Receive Date: 20190510
  Receipt Date: 20190607
  Transmission Date: 20190711
  Serious: Yes (Hospitalization, Other)
  Sender: FDA-Public Use
  Company Number: CA-PFIZER INC-2019198069

PATIENT
  Age: 72 Year
  Sex: Male

DRUGS (1)
  1. XELJANZ [Suspect]
     Active Substance: TOFACITINIB CITRATE
     Indication: COLITIS ULCERATIVE
     Dosage: UNK
     Dates: start: 201811, end: 201812

REACTIONS (4)
  - Clostridium difficile colitis [Unknown]
  - Malignant melanoma [Unknown]
  - Bacterial sepsis [Unknown]
  - Organising pneumonia [Unknown]
